FAERS Safety Report 8240767-8 (Version None)
Quarter: 2012Q1

REPORT INFORMATION
  Report Type: 
  Country: None (occurrence: None)
  Receive Date: 20120328
  Receipt Date: 20120322
  Transmission Date: 20120608
  Serious: Yes (Other)
  Sender: FDA-Public Use
  Company Number: PHHY2012CA017473

PATIENT
  Sex: Male

DRUGS (2)
  1. GILENYA [Suspect]
     Indication: RELAPSING-REMITTING MULTIPLE SCLEROSIS
     Dosage: 0.5 MG, DAILY
     Route: 048
     Dates: start: 20120217
  2. SERAX [Concomitant]

REACTIONS (6)
  - URINARY RETENTION [None]
  - RASH GENERALISED [None]
  - PARANOIA [None]
  - HALLUCINATION [None]
  - AGGRESSION [None]
  - HYPOAESTHESIA [None]
